FAERS Safety Report 7790532-0 (Version None)
Quarter: 2011Q3

REPORT INFORMATION
  Report Type: 
  Country: None (occurrence: None)
  Receive Date: 20110930
  Receipt Date: 20110928
  Transmission Date: 20111222
  Serious: Yes (Death, Other)
  Sender: FDA-Public Use
  Company Number: PHHY2011US61701

PATIENT
  Sex: Male

DRUGS (2)
  1. GLEEVEC [Suspect]
     Indication: MALIGNANT SOFT TISSUE NEOPLASM
     Dosage: 400 MG, DAILY
     Route: 048
     Dates: start: 20110203
  2. GLEEVEC [Suspect]
     Dosage: 100 MG DAILY 1 TABLET
     Route: 048

REACTIONS (2)
  - DEATH [None]
  - RENAL FAILURE [None]
